FAERS Safety Report 4368124-5 (Version None)
Quarter: 2004Q2

REPORT INFORMATION
  Report Type: 
  Country: None (occurrence: None)
  Receive Date: 20040602
  Receipt Date: 20011024
  Transmission Date: 20050107
  Serious: Yes (Hospitalization, Other)
  Sender: FDA-Public Use
  Company Number: US-MERCK-01104471

PATIENT
  Age: 66 Year
  Sex: Male
  Weight: 81 kg

DRUGS (3)
  1. ASPIRIN [Concomitant]
     Route: 065
     Dates: start: 20010417
  2. VIOXX [Suspect]
     Indication: OSTEOARTHRITIS
     Route: 048
     Dates: start: 20001001, end: 20020330
  3. RESTORIL [Concomitant]
     Indication: SLEEP DISORDER THERAPY
     Route: 065
     Dates: start: 20010101

REACTIONS (28)
  - APATHY [None]
  - ASTHENIA [None]
  - ATELECTASIS [None]
  - CEREBRAL INFARCTION [None]
  - CEREBRAL THROMBOSIS [None]
  - CEREBROVASCULAR ACCIDENT [None]
  - CHOKING [None]
  - CIRCULATORY COLLAPSE [None]
  - COGNITIVE DISORDER [None]
  - DEPERSONALISATION [None]
  - DISORIENTATION [None]
  - DUODENITIS [None]
  - GASTROOESOPHAGEAL REFLUX DISEASE [None]
  - HEART RATE INCREASED [None]
  - HEART RATE IRREGULAR [None]
  - HYPERTENSION [None]
  - HYPOACUSIS [None]
  - INJURY [None]
  - LIBIDO DECREASED [None]
  - MENTAL IMPAIRMENT [None]
  - MENTAL STATUS CHANGES [None]
  - OESOPHAGEAL RUPTURE [None]
  - OESOPHAGITIS [None]
  - SELF ESTEEM DECREASED [None]
  - SUPRAVENTRICULAR EXTRASYSTOLES [None]
  - THROMBOEMBOLIC STROKE [None]
  - TRANSIENT ISCHAEMIC ATTACK [None]
  - WEIGHT BELOW NORMAL [None]
